FAERS Safety Report 25894324 (Version 1)
Quarter: 2025Q4

REPORT INFORMATION
  Report Type: Spontaneous
  Country: EU (occurrence: None)
  Receive Date: 20251008
  Receipt Date: 20251008
  Transmission Date: 20260118
  Serious: Yes (Hospitalization, Other)
  Sender: ADIENNE PHARMA & BIOTECH
  Company Number: EU-ADIENNEP-2025AD000759

PATIENT
  Sex: Male

DRUGS (6)
  1. THIOTEPA [Suspect]
     Active Substance: THIOTEPA
     Indication: Allogenic stem cell transplantation
     Dosage: 5 MG/KG, ON DAYS -7 AND -6
     Dates: start: 2023, end: 2023
  2. BUSULFAN [Suspect]
     Active Substance: BUSULFAN
     Indication: Allogenic stem cell transplantation
     Dosage: 3.2 MG/KG, ON DAYS -5 AND -4
     Route: 042
     Dates: start: 2023, end: 2023
  3. FLUDARABINE [Suspect]
     Active Substance: FLUDARABINE PHOSPHATE
     Indication: Allogenic stem cell transplantation
     Dosage: 50 MG/KG, ON DAYS -5, -4, AND -3
     Dates: start: 2023, end: 2023
  4. CYCLOPHOSPHAMIDE [Suspect]
     Active Substance: CYCLOPHOSPHAMIDE
     Indication: Prophylaxis against graft versus host disease
     Dosage: 50 MG/KG, ON DAYS +3 AND +4
     Dates: start: 2023, end: 2023
  5. SIROLIMUS [Suspect]
     Active Substance: SIROLIMUS
     Indication: Prophylaxis against graft versus host disease
     Dosage: ()
     Dates: start: 2023
  6. MYCOPHENOLATE MOFETIL [Suspect]
     Active Substance: MYCOPHENOLATE MOFETIL
     Indication: Prophylaxis against graft versus host disease
     Dosage: STARTING ON DAY +5 ()
     Dates: start: 2023

REACTIONS (4)
  - Chronic graft versus host disease in skin [Recovered/Resolved]
  - Chronic graft versus host disease oral [Recovered/Resolved]
  - Chronic graft versus host disease in eye [Recovered/Resolved]
  - Pneumonia pneumococcal [Recovered/Resolved]
